FAERS Safety Report 4738654-2 (Version None)
Quarter: 2005Q3

REPORT INFORMATION
  Report Type: 
  Country: None (occurrence: None)
  Receive Date: 20050808
  Receipt Date: 20050808
  Transmission Date: 20060218
  Serious: Yes (Other)
  Sender: FDA-Public Use
  Company Number: None

PATIENT
  Sex: Male
  Weight: 129.2752 kg

DRUGS (9)
  1. FLUVASTATIN SODIUM SA (LESCOL XL) STABLET [Suspect]
     Indication: CORONARY ARTERY DISEASE
     Dosage: 80MG PO DAILY QHS
     Route: 048
     Dates: start: 20041208, end: 20050602
  2. FLUVASTATIN SODIUM SA (LESCOL XL) STABLET [Suspect]
     Indication: DYSLIPIDAEMIA
     Dosage: 80MG PO DAILY QHS
     Route: 048
     Dates: start: 20041208, end: 20050602
  3. ATORVASTATIN CALCIUM [Concomitant]
  4. CLOPIDOGREL BISULFATE [Concomitant]
  5. EZETIMIBE [Concomitant]
  6. GLIPIZIDE [Concomitant]
  7. LOSARTAN [Concomitant]
  8. PROBENECID [Concomitant]
  9. TRAMADOL HCL [Concomitant]

REACTIONS (1)
  - PALPITATIONS [None]
